FAERS Safety Report 15243245 (Version 1)
Quarter: 2018Q3

REPORT INFORMATION
  Report Type: Spontaneous
  Country: US (occurrence: US)
  Receive Date: 20180712
  Receipt Date: 20180712
  Transmission Date: 20181010
  Serious: Yes (Hospitalization)
  Sender: FDA-Public Use
  Company Number: None

PATIENT
  Age: 70 Year
  Sex: Female

DRUGS (14)
  1. TACROLIMUS 1MG [Suspect]
     Active Substance: TACROLIMUS
     Indication: RENAL TRANSPLANT
     Route: 048
     Dates: start: 20130524
  2. VERAPAMIL [Concomitant]
     Active Substance: VERAPAMIL HYDROCHLORIDE
  3. HYDROCOD/IBU [Concomitant]
  4. SMZ?TMP [Concomitant]
     Active Substance: SULFAMETHOXAZOLE\TRIMETHOPRIM
  5. PREDNISDNE. [Concomitant]
  6. ASPIRIN. [Concomitant]
     Active Substance: ASPIRIN
  7. MULTIVITAMIN [Concomitant]
     Active Substance: VITAMINS
  8. DOSAZOSIN [Concomitant]
  9. CLARITIN [Concomitant]
     Active Substance: LORATADINE
  10. VITAMIN C [Concomitant]
     Active Substance: ASCORBIC ACID
  11. ALLOPURINOL. [Concomitant]
     Active Substance: ALLOPURINOL
  12. METOPRDLOL [Concomitant]
  13. RELPAK [Concomitant]
  14. BONIVA [Concomitant]
     Active Substance: IBANDRONATE SODIUM

REACTIONS (3)
  - Limb operation [None]
  - Memory impairment [None]
  - Drug dose omission [None]

NARRATIVE: CASE EVENT DATE: 20180626
